FAERS Safety Report 13234099 (Version 1)
Quarter: 2017Q1

REPORT INFORMATION
  Report Type: Spontaneous
  Country: US (occurrence: US)
  Receive Date: 20170215
  Receipt Date: 20170215
  Transmission Date: 20170428
  Serious: No
  Sender: FDA-Public Use
  Company Number: None

PATIENT

DRUGS (2)
  1. VALPROATE SODIUM 500MG PER 5ML [Suspect]
     Active Substance: VALPROATE SODIUM
     Dosage: DOSAGE FORM - INJECTABLE?ADM ROUTE - INTRAVENOUS INFUSION?STRENGTH - 500 MG PER 5 ML?TYPE - SINGLE USE VIAL?SIZE 5 ML
     Route: 042
  2. LEVETIRACETAM. [Suspect]
     Active Substance: LEVETIRACETAM
     Dosage: DOSAGE FORM - INJECTABLE?STRENGTH - 500 MG PER 5 ML?TYPE SINGLE USE VIAL?SIZE - 5 ML
     Route: 042

REACTIONS (2)
  - Circumstance or information capable of leading to medication error [None]
  - Product packaging confusion [None]
